FAERS Safety Report 17547667 (Version 7)
Quarter: 2024Q2

REPORT INFORMATION
  Report Type: Report from Study
  Country: US (occurrence: US)
  Receive Date: 20200317
  Receipt Date: 20240520
  Transmission Date: 20240716
  Serious: Yes (Other)
  Sender: FDA-Public Use
  Company Number: US-SHIRE-US202009261

PATIENT
  Sex: Male

DRUGS (4)
  1. VELAGLUCERASE ALFA [Suspect]
     Active Substance: VELAGLUCERASE ALFA
     Indication: Gaucher^s disease
     Dosage: UNK, 2/MONTH
     Route: 042
     Dates: start: 20100708
  2. VELAGLUCERASE ALFA [Suspect]
     Active Substance: VELAGLUCERASE ALFA
     Indication: Gaucher^s disease type I
     Dosage: UNK UNK, Q2WEEKS
     Route: 042
  3. ATB [Concomitant]
     Indication: Cellulitis
     Dosage: UNK
     Route: 065
  4. BENADRYL [Concomitant]
     Active Substance: DIPHENHYDRAMINE HYDROCHLORIDE
     Indication: Infusion related reaction
     Dosage: UNK UNK, Q2WEEKS
     Route: 042
     Dates: start: 2010

REACTIONS (8)
  - Diabetes mellitus [Not Recovered/Not Resolved]
  - Cellulitis [Recovering/Resolving]
  - Chest pain [Recovering/Resolving]
  - Joint stiffness [Unknown]
  - Inability to afford medication [Unknown]
  - Vision blurred [Not Recovered/Not Resolved]
  - Spleen disorder [Not Recovered/Not Resolved]
  - Inappropriate schedule of product administration [Unknown]

NARRATIVE: CASE EVENT DATE: 20100101
